FAERS Safety Report 22372451 (Version 2)
Quarter: 2023Q2

REPORT INFORMATION
  Report Type: Report from Study
  Country: US (occurrence: US)
  Receive Date: 20230526
  Receipt Date: 20230531
  Transmission Date: 20230721
  Serious: No
  Sender: FDA-Public Use
  Company Number: US-SANOFI-01627349

PATIENT
  Age: 74 Year
  Sex: Male

DRUGS (1)
  1. DUPILUMAB [Suspect]
     Active Substance: DUPILUMAB
     Indication: Dermatitis atopic
     Dosage: 600 MG, 1X
     Route: 058
     Dates: start: 20230513, end: 20230513

REACTIONS (4)
  - Essential tremor [Not Recovered/Not Resolved]
  - Condition aggravated [Not Recovered/Not Resolved]
  - Movement disorder [Not Recovered/Not Resolved]
  - Rhinorrhoea [Not Recovered/Not Resolved]

NARRATIVE: CASE EVENT DATE: 20230501
